FAERS Safety Report 9184298 (Version 1)
Quarter: 2012Q4

REPORT INFORMATION
  Report Type: 
  Country: CH (occurrence: CH)
  Receive Date: 20121031
  Receipt Date: 20121031
  Transmission Date: 20130627
  Serious: Yes (Hospitalization, Disabling)
  Sender: FDA-Public Use
  Company Number: CH-009507513-1210CHE012272

PATIENT
  Age: 74 Year
  Sex: Female

DRUGS (14)
  1. INEGY [Suspect]
     Dosage: UNK mg, UNK
     Route: 048
     Dates: end: 20120828
  2. CYMBALTA [Suspect]
     Dosage: 60 mg, qd
     Route: 048
     Dates: start: 20100825, end: 20120825
  3. ZYVOXID [Suspect]
     Dosage: UNK
     Dates: start: 20111101, end: 20120101
  4. MST CONTINUS [Suspect]
     Dosage: 90 mg, tid
     Route: 048
     Dates: start: 20111101, end: 20120824
  5. LIPANTHYL [Concomitant]
     Dosage: 200 mg, qd
     Route: 048
  6. VANCOMYCIN [Concomitant]
     Dosage: 500 mg, qd
     Route: 042
     Dates: start: 20111101, end: 20120101
  7. TARGOCID [Concomitant]
     Dosage: 200 mg, qd
     Route: 048
     Dates: start: 20111101, end: 20120101
  8. ASPIRIN [Concomitant]
     Dosage: 100 mg, qd
     Route: 048
  9. ZOLPIDEM TARTRATE [Concomitant]
     Dosage: 10 mg, qd
     Route: 048
     Dates: start: 20120101
  10. SALMETEROL [Concomitant]
     Dosage: 50 mg, bid
     Route: 055
     Dates: start: 20080101
  11. SPIRIVA [Concomitant]
     Dosage: 18 Microgram, qd
     Route: 055
     Dates: start: 20080101
  12. MYCOSTATIN [Concomitant]
     Dosage: 100000 iu, qd
     Route: 048
     Dates: start: 20110901
  13. PANTOPRAZOLE [Concomitant]
     Dosage: 20 mg, qd
     Route: 048
     Dates: start: 20100901
  14. COMILORID [Concomitant]
     Dosage: 50 mg, qd
     Route: 048

REACTIONS (7)
  - Neuropathy peripheral [Not Recovered/Not Resolved]
  - Condition aggravated [Not Recovered/Not Resolved]
  - Bronchopneumonia [Unknown]
  - Decreased appetite [Unknown]
  - Hypokalaemia [Unknown]
  - Hyponatraemia [Unknown]
  - Inflammation [Unknown]
